FAERS Safety Report 7638521-0 (Version None)
Quarter: 2011Q3

REPORT INFORMATION
  Report Type: 
  Country: None (occurrence: None)
  Receive Date: 20110727
  Receipt Date: 20110715
  Transmission Date: 20111222
  Serious: Yes (Hospitalization, Other)
  Sender: FDA-Public Use
  Company Number: PHFR2011IE03969

PATIENT
  Sex: Male

DRUGS (2)
  1. OLANZAPINE [Concomitant]
     Route: 065
  2. CLOZAPINE [Suspect]
     Indication: SCHIZOPHRENIA
     Route: 048
     Dates: start: 20041120

REACTIONS (12)
  - PLEURAL EFFUSION [None]
  - EOSINOPHIL COUNT INCREASED [None]
  - VOMITING [None]
  - CHEST PAIN [None]
  - PLATELET COUNT DECREASED [None]
  - FATIGUE [None]
  - DIARRHOEA [None]
  - NEUTROPHIL COUNT DECREASED [None]
  - GASTROINTESTINAL DISORDER [None]
  - PLATELET COUNT INCREASED [None]
  - PULMONARY OEDEMA [None]
  - WHITE BLOOD CELL COUNT DECREASED [None]
